FAERS Safety Report 8572441-2 (Version None)
Quarter: 2012Q3

REPORT INFORMATION
  Report Type: 
  Country: None (occurrence: None)
  Receive Date: 20120806
  Receipt Date: 20120723
  Transmission Date: 20120928
  Serious: No
  Sender: FDA-Public Use
  Company Number: US-ROXANE LABORATORIES, INC.-2012-RO-01584RO

PATIENT
  Age: 46 Year
  Sex: Female

DRUGS (1)
  1. METHADONE HCL [Suspect]
     Dosage: 20 MG
     Route: 048
     Dates: start: 20120501

REACTIONS (2)
  - PRODUCT QUALITY ISSUE [None]
  - DRUG INEFFECTIVE [None]
